FAERS Safety Report 10470557 (Version 1)
Quarter: 2014Q3

REPORT INFORMATION
  Report Type: Spontaneous
  Country: US (occurrence: US)
  Receive Date: 20140923
  Receipt Date: 20140923
  Transmission Date: 20150326
  Serious: Yes (Hospitalization)
  Sender: FDA-Public Use
  Company Number: US-GILEAD-2014-0115756

PATIENT
  Age: 71 Year
  Sex: Female

DRUGS (4)
  1. FORADIL [Concomitant]
     Active Substance: FORMOTEROL FUMARATE
  2. LETAIRIS [Suspect]
     Active Substance: AMBRISENTAN
     Indication: PRODUCT USED FOR UNKNOWN INDICATION
     Dosage: 5 MG, QD
     Route: 065
     Dates: start: 20120917
  3. TYVASO [Concomitant]
     Active Substance: TREPROSTINIL
  4. REVATIO [Concomitant]
     Active Substance: SILDENAFIL CITRATE

REACTIONS (4)
  - Dyspnoea [Unknown]
  - Blood count abnormal [Unknown]
  - Dizziness [Unknown]
  - Haemorrhage [Unknown]
